FAERS Safety Report 12984110 (Version 1)
Quarter: 2016Q4

REPORT INFORMATION
  Report Type: Spontaneous
  Country: US (occurrence: US)
  Receive Date: 20161129
  Receipt Date: 20161129
  Transmission Date: 20170207
  Serious: Yes (Hospitalization)
  Sender: FDA-Public Use
  Company Number: US-ASTRAZENECA-2016SF24542

PATIENT
  Sex: Female

DRUGS (12)
  1. SYMBICORT [Suspect]
     Active Substance: BUDESONIDE\FORMOTEROL FUMARATE DIHYDRATE
     Indication: DYSPNOEA
     Dosage: 80/4.5 TWO PUFFS TWICE A DAY
     Route: 055
     Dates: start: 201312
  2. REVATIO [Concomitant]
     Active Substance: SILDENAFIL CITRATE
     Indication: INTERSTITIAL LUNG DISEASE
     Dates: start: 201002
  3. IRON [Concomitant]
     Active Substance: IRON
     Dates: start: 2011
  4. LEVOTHYROXINE. [Concomitant]
     Active Substance: LEVOTHYROXINE
     Indication: THYROID DISORDER
     Dates: start: 201312
  5. MULTIVITAMINS [Concomitant]
     Active Substance: VITAMINS
     Dates: start: 1981
  6. LASIX [Concomitant]
     Active Substance: FUROSEMIDE
     Indication: CARDIAC FAILURE CONGESTIVE
     Dates: start: 2005
  7. VITAMIN E [Concomitant]
     Active Substance: .ALPHA.-TOCOPHEROL
     Dates: start: 1996
  8. REVATIO [Concomitant]
     Active Substance: SILDENAFIL CITRATE
     Indication: PULMONARY ARTERIAL HYPERTENSION
     Dates: start: 201002
  9. UPTRAVI [Concomitant]
     Active Substance: SELEXIPAG
     Indication: PULMONARY ARTERIAL HYPERTENSION
     Dosage: 200.0UG UNKNOWN
     Dates: start: 20161016
  10. FLONASE [Concomitant]
     Active Substance: FLUTICASONE PROPIONATE
     Indication: DYSPNOEA
     Dosage: 40.0MG UNKNOWN
     Dates: start: 2013
  11. BENZONATATE. [Concomitant]
     Active Substance: BENZONATATE
     Indication: COUGH
     Dates: start: 201506
  12. VITAMIN D [Concomitant]
     Active Substance: CHOLECALCIFEROL
     Dates: start: 2005

REACTIONS (2)
  - Pneumonia [Recovering/Resolving]
  - Cardiac failure congestive [Unknown]
